FAERS Safety Report 6221802-5 (Version None)
Quarter: 2009Q2

REPORT INFORMATION
  Report Type: 
  Country: None (occurrence: None)
  Receive Date: 20090610
  Receipt Date: 20090601
  Transmission Date: 20091009
  Serious: Yes (Hospitalization, Other)
  Sender: FDA-Public Use
  Company Number: US-PFIZER INC-2009221377

PATIENT
  Age: 81 Year
  Sex: Female

DRUGS (6)
  1. METHYLPREDNISOLONE AND METHYLPREDNISOLONE ACETATE AND METHYLPREDNISOLO [Suspect]
     Indication: RADICULAR PAIN
     Dosage: 80 MG, UNK
     Route: 008
  2. WARFARIN [Concomitant]
  3. ACETAMINOPHEN [Concomitant]
  4. LISINOPRIL [Concomitant]
  5. PROPRANOLOL [Concomitant]
  6. SINEMET [Concomitant]

REACTIONS (2)
  - EMBOLIC STROKE [None]
  - INCORRECT ROUTE OF DRUG ADMINISTRATION [None]
